FAERS Safety Report 11875631 (Version 3)
Quarter: 2016Q3

REPORT INFORMATION
  Report Type: Spontaneous
  Country: JP (occurrence: JP)
  Receive Date: 20151229
  Receipt Date: 20160818
  Transmission Date: 20161109
  Serious: Yes (Death, Other)
  Sender: FDA-Public Use
  Company Number: JP-PFIZER INC-2015470090

PATIENT
  Age: 84 Year
  Sex: Female
  Weight: 48 kg

DRUGS (13)
  1. ZOSYN [Suspect]
     Active Substance: PIPERACILLIN SODIUM\TAZOBACTAM SODIUM
     Indication: PNEUMONIA ASPIRATION
     Dosage: 4.5 G, 2X/DAY
     Route: 041
     Dates: start: 20151205, end: 20151205
  2. ZOSYN [Suspect]
     Active Substance: PIPERACILLIN SODIUM\TAZOBACTAM SODIUM
     Indication: C-REACTIVE PROTEIN INCREASED
  3. NIZORAL [Concomitant]
     Active Substance: KETOCONAZOLE
     Indication: FUNGAL SKIN INFECTION
     Dosage: UNK
     Route: 061
     Dates: start: 20151208
  4. NEOAMIYU [Concomitant]
     Active Substance: AMINO ACIDS
     Indication: NUTRITIONAL SUPPLEMENTATION
     Dosage: 200 MG, 1X/DAY
     Route: 041
     Dates: start: 20151211, end: 20151211
  5. PN TWIN [Concomitant]
     Indication: NUTRITIONAL SUPPLEMENTATION
     Dosage: 1200 ML, 1X/DAY
     Route: 041
     Dates: start: 20151103, end: 20151211
  6. MINERIC 5 [Concomitant]
     Indication: NUTRITIONAL SUPPLEMENTATION
     Dosage: 1 ML, 1X/DAY
     Route: 041
     Dates: start: 20151103, end: 20151211
  7. METILON [Concomitant]
     Active Substance: METAMIZOLE SODIUM
     Indication: PYREXIA
     Dosage: 1 ML, DAILY
     Route: 030
     Dates: start: 20151204, end: 20151205
  8. NEOLAMIN MULTI V [Concomitant]
     Active Substance: HYDROXOCOBALAMIN\PYRIDOXINE HYDROCHLORIDE\THIAMINE HYDROCHLORIDE
     Indication: NUTRITIONAL SUPPLEMENTATION
     Dosage: 1 V/DAY
     Route: 041
     Dates: start: 20151103, end: 20151211
  9. PARESAFE [Concomitant]
     Indication: NUTRITIONAL SUPPLEMENTATION
     Dosage: 500 ML, 1X/DAY
     Route: 041
     Dates: start: 20151002, end: 20151211
  10. NORVASC [Concomitant]
     Active Substance: AMLODIPINE BESYLATE
     Indication: HYPERTENSION
     Dosage: 5 MG, 1X/DAY
     Route: 048
     Dates: start: 20151112, end: 20151202
  11. ZOSYN [Suspect]
     Active Substance: PIPERACILLIN SODIUM\TAZOBACTAM SODIUM
     Indication: PYREXIA
     Dosage: 4.5 G, 3X/DAY
     Route: 041
     Dates: start: 20151206, end: 20151209
  12. METILON [Concomitant]
     Active Substance: METAMIZOLE SODIUM
     Indication: C-REACTIVE PROTEIN INCREASED
  13. FAMOTIDINE. [Concomitant]
     Active Substance: FAMOTIDINE
     Indication: PROPHYLAXIS AGAINST GASTROINTESTINAL ULCER
     Dosage: 40 MG, DAILY
     Route: 041
     Dates: start: 20151102, end: 20151211

REACTIONS (2)
  - Multiple organ dysfunction syndrome [Fatal]
  - Renal failure [Fatal]

NARRATIVE: CASE EVENT DATE: 20151211
